FAERS Safety Report 22518384 (Version 1)
Quarter: 2023Q2

REPORT INFORMATION
  Report Type: Spontaneous
  Country: US (occurrence: US)
  Receive Date: 20230605
  Receipt Date: 20230605
  Transmission Date: 20230721
  Serious: No
  Sender: FDA-Public Use
  Company Number: US-JNJFOC-20230603095

PATIENT
  Age: 46 Year
  Sex: Male
  Weight: 120.31 kg

DRUGS (1)
  1. TREMFYA [Suspect]
     Active Substance: GUSELKUMAB
     Indication: Psoriasis
     Route: 058
     Dates: start: 20230513

REACTIONS (2)
  - Arthralgia [Recovered/Resolved]
  - Headache [Unknown]
